FAERS Safety Report 10233536 (Version 3)
Quarter: 2014Q3

REPORT INFORMATION
  Report Type: Spontaneous
  Country: HK (occurrence: HK)
  Receive Date: 20140612
  Receipt Date: 20140904
  Transmission Date: 20150326
  Serious: Yes (Other)
  Sender: FDA-Public Use
  Company Number: HK-GLAXOSMITHKLINE-B1002642A

PATIENT
  Age: 45 Year
  Sex: Female
  Weight: 65 kg

DRUGS (3)
  1. PREDNISOLONE. [Concomitant]
     Active Substance: PREDNISOLONE
     Indication: SYSTEMIC LUPUS ERYTHEMATOSUS
     Dosage: 7.5MG PER DAY
     Route: 048
     Dates: start: 20130909
  2. BENLYSTA [Suspect]
     Active Substance: BELIMUMAB
     Indication: SYSTEMIC LUPUS ERYTHEMATOSUS
     Dosage: 520MG PER DAY
     Route: 042
     Dates: start: 20131009, end: 20140207
  3. PLAQUENIL [Concomitant]
     Active Substance: HYDROXYCHLOROQUINE SULFATE
     Indication: SYSTEMIC LUPUS ERYTHEMATOSUS
     Dosage: 400MG PER DAY
     Route: 048
     Dates: start: 20130909

REACTIONS (6)
  - Lupus nephritis [Recovering/Resolving]
  - Pancytopenia [Unknown]
  - Arthritis [Unknown]
  - Proteinuria [Unknown]
  - Nephrotic syndrome [Unknown]
  - Rash [Unknown]

NARRATIVE: CASE EVENT DATE: 20131009
